FAERS Safety Report 6904448-2 (Version None)
Quarter: 2010Q3

REPORT INFORMATION
  Report Type: 
  Country: None (occurrence: None)
  Receive Date: 20100804
  Receipt Date: 20090524
  Transmission Date: 20110219
  Serious: No
  Sender: FDA-Public Use
  Company Number: US-PFIZER INC-2008085956

PATIENT
  Sex: Female
  Weight: 70.3 kg

DRUGS (12)
  1. LYRICA [Suspect]
     Indication: FIBROMYALGIA
     Dosage: UNK
     Route: 048
     Dates: start: 20080101
  2. TRAMADOL [Concomitant]
     Dosage: 50 MG, 3X/DAY
     Route: 048
  3. NORTRIPTYLINE [Concomitant]
     Dosage: UNK
     Route: 048
  4. TIZANIDINE HCL [Concomitant]
     Dosage: 4 MG, UNK
     Route: 048
  5. LEVOTHYROXINE [Concomitant]
     Dosage: 0.137 MG, UNK
     Route: 048
  6. MIRTAZAPINE [Concomitant]
     Dosage: 15 MG, 1X/DAY
     Route: 048
  7. REQUIP [Concomitant]
     Dosage: 2 MG, 1X/DAY
     Route: 048
  8. CLONAZEPAM [Concomitant]
     Dosage: 1 MG, UNK
     Route: 048
  9. NEXIUM [Concomitant]
     Dosage: 40 MG, UNK
     Route: 048
  10. ADVAIR DISKUS 100/50 [Concomitant]
     Dosage: 250 MG, 1X/DAY
     Route: 048
  11. SPIRIVA [Concomitant]
     Dosage: UNK
     Route: 048
  12. ALBUTEROL [Concomitant]
     Dosage: UNK
     Route: 048

REACTIONS (4)
  - AFFECT LABILITY [None]
  - CRYING [None]
  - PAIN [None]
  - WEIGHT INCREASED [None]
